FAERS Safety Report 6483585-3 (Version None)
Quarter: 2009Q4

REPORT INFORMATION
  Report Type: 
  Country: None (occurrence: None)
  Receive Date: 20091208
  Receipt Date: 20091208
  Transmission Date: 20100525
  Serious: Yes (Hospitalization)
  Sender: FDA-Public Use
  Company Number: None

PATIENT
  Sex: Female
  Weight: 65.4 kg

DRUGS (1)
  1. SORAFENIB 200MG BAYER [Suspect]
     Indication: ADENOID CYSTIC CARCINOMA
     Dosage: 400 MG BID ORAL
     Route: 048
     Dates: start: 20091022, end: 20091104

REACTIONS (5)
  - DYSPHAGIA [None]
  - DYSPNOEA [None]
  - FEBRILE NEUTROPENIA [None]
  - RASH GENERALISED [None]
  - THERAPEUTIC AGENT TOXICITY [None]
